FAERS Safety Report 4682178-8 (Version None)
Quarter: 2005Q2

REPORT INFORMATION
  Report Type: 
  Country: None (occurrence: None)
  Receive Date: 20050602
  Receipt Date: 20050523
  Transmission Date: 20051028
  Serious: Yes (Disabling)
  Sender: FDA-Public Use
  Company Number: 26680

PATIENT
  Age: 76 Year
  Sex: Female

DRUGS (5)
  1. FLECAINIDE ACETATE [Suspect]
     Indication: ATRIAL FIBRILLATION
     Dosage: 100 MG (50 MG, 2 IN 1 DAY (S))
     Route: 048
     Dates: start: 20050101, end: 20050213
  2. ASPIRIN [Concomitant]
  3. DIGOXIN [Concomitant]
  4. FRUSEMIDE [Concomitant]
  5. TENIF [Concomitant]

REACTIONS (1)
  - PHOTOSENSITIVITY REACTION [None]
